FAERS Safety Report 7222948-5 (Version None)
Quarter: 2011Q1

REPORT INFORMATION
  Report Type: 
  Country: None (occurrence: None)
  Receive Date: 20110106
  Receipt Date: 20110106
  Transmission Date: 20110831
  Serious: Yes (Hospitalization)
  Sender: FDA-Public Use
  Company Number: None

PATIENT
  Age: 87 Year
  Sex: Female
  Weight: 67.3 kg

DRUGS (12)
  1. COREG [Concomitant]
  2. AMOXICILLN [Concomitant]
  3. CHLORTHALIDONE [Concomitant]
  4. FUROSEMIDE [Concomitant]
  5. KLOR-CON [Concomitant]
  6. SYNTHROID [Concomitant]
  7. COUMADIN [Suspect]
     Indication: ATRIAL FIBRILLATION
     Dosage: 5MG/2.5 MG TTHSS/MWF PO
     Route: 048
  8. DIGOXIN [Concomitant]
  9. PLAVIX [Suspect]
     Indication: CORONARY ARTERY DISEASE
     Dosage: 75MG WITH BKFAST PO
     Route: 048
  10. M.V.I. [Concomitant]
  11. CHLOR-TRIMETON ALLERGY [Concomitant]
  12. ENALAPRIL MALEATE [Concomitant]

REACTIONS (2)
  - INTRACRANIAL PRESSURE INCREASED [None]
  - INTERNATIONAL NORMALISED RATIO INCREASED [None]
